FAERS Safety Report 6775076-7 (Version None)
Quarter: 2010Q2

REPORT INFORMATION
  Report Type: 
  Country: None (occurrence: None)
  Receive Date: 20100617
  Receipt Date: 20100609
  Transmission Date: 20101027
  Serious: Yes (Hospitalization)
  Sender: FDA-Public Use
  Company Number: B0659691A

PATIENT
  Sex: Male

DRUGS (4)
  1. FORTUM [Suspect]
     Route: 042
     Dates: start: 20100301
  2. PROGRAF [Suspect]
     Indication: HEART TRANSPLANT
     Dosage: 3MG TWICE PER DAY
     Route: 048
     Dates: start: 20081001
  3. DORIPENEM [Concomitant]
     Route: 065
  4. COLIMYCIN [Concomitant]
     Route: 065

REACTIONS (10)
  - AGITATION [None]
  - AREFLEXIA [None]
  - ASTERIXIS [None]
  - CONFUSIONAL STATE [None]
  - DYSPNOEA [None]
  - ENCEPHALOPATHY [None]
  - HALLUCINATION [None]
  - OROPHARYNGEAL DISCOMFORT [None]
  - OVERDOSE [None]
  - RENAL FAILURE [None]
